FAERS Safety Report 8620793-7 (Version None)
Quarter: 2012Q3

REPORT INFORMATION
  Report Type: 
  Country: None (occurrence: None)
  Receive Date: 20120824
  Receipt Date: 20120822
  Transmission Date: 20120928
  Serious: Yes (Other)
  Sender: FDA-Public Use
  Company Number: GB-ROCHE-1097068

PATIENT
  Sex: Male

DRUGS (8)
  1. FOLIC ACID [Concomitant]
     Indication: STILL'S DISEASE ADULT ONSET
     Route: 048
     Dates: start: 20120314
  2. OXYTETRACYCLINE [Concomitant]
     Indication: FOLLICULITIS
  3. ROACTEMRA [Suspect]
     Indication: STILL'S DISEASE ADULT ONSET
     Route: 042
     Dates: start: 20120612, end: 20120612
  4. METHOTREXATE [Concomitant]
     Indication: STILL'S DISEASE ADULT ONSET
     Route: 048
     Dates: start: 20120314
  5. OXYTETRACYCLINE [Concomitant]
     Indication: ACNE
     Dates: start: 20120529
  6. ALENDRONATE SODIUM [Concomitant]
     Indication: OSTEOPOROSIS
     Route: 048
     Dates: start: 20120314
  7. HYDROCORTISONE [Concomitant]
  8. PREDNISOLONE [Concomitant]
     Indication: STILL'S DISEASE ADULT ONSET
     Route: 048
     Dates: start: 20120215

REACTIONS (5)
  - NAUSEA [None]
  - FLUSHING [None]
  - CHILLS [None]
  - PYREXIA [None]
  - TACHYCARDIA [None]
